FAERS Safety Report 9349456 (Version 1)
Quarter: 2013Q2

REPORT INFORMATION
  Report Type: Report from Study
  Country: BR (occurrence: BR)
  Receive Date: 20130614
  Receipt Date: 20130614
  Transmission Date: 20140414
  Serious: Yes (Hospitalization, Other)
  Sender: FDA-Public Use
  Company Number: BR-ABBOTT-13P-020-1083142-00

PATIENT
  Sex: Female
  Weight: 40 kg

DRUGS (3)
  1. HUMIRA [Suspect]
     Indication: CROHN^S DISEASE
     Route: 058
  2. HUMIRA [Suspect]
     Route: 058
  3. HUMIRA [Suspect]
     Route: 058

REACTIONS (7)
  - Pain [Unknown]
  - Crohn^s disease [Unknown]
  - Cholecystectomy [Unknown]
  - Appendicectomy [Unknown]
  - Intestinal operation [Unknown]
  - Lung infection [Unknown]
  - Weight decreased [Recovering/Resolving]
